FAERS Safety Report 9234629 (Version 1)
Quarter: 2013Q2

REPORT INFORMATION
  Report Type: Spontaneous
  Country: DE (occurrence: DE)
  Receive Date: 20130416
  Receipt Date: 20130416
  Transmission Date: 20140414
  Serious: Yes (Death, Life-Threatening, Hospitalization)
  Sender: FDA-Public Use
  Company Number: DE-ASTRAZENECA-2013SE24671

PATIENT
  Age: 90 Year
  Sex: Female

DRUGS (11)
  1. BELOC-ZOK [Suspect]
     Route: 048
  2. TREVILOR [Suspect]
     Route: 048
     Dates: start: 2010, end: 20121219
  3. TREVILOR [Suspect]
     Route: 048
     Dates: start: 20121220
  4. DOMINAL [Suspect]
     Route: 048
     Dates: start: 2010
  5. EUNERPAN [Interacting]
     Route: 048
     Dates: start: 20130101, end: 20130207
  6. MELPERONE [Interacting]
     Route: 048
     Dates: start: 20130208
  7. RAMIPRIL [Concomitant]
     Route: 048
  8. VIGANTOLETTEN [Concomitant]
     Route: 048
  9. SCHWEDENTABLETTEN [Concomitant]
     Dates: start: 2010
  10. SCHWEDENTABLETTEN [Concomitant]
     Route: 048
     Dates: start: 20130205
  11. CITALOPRAM [Concomitant]

REACTIONS (7)
  - Drug interaction [Fatal]
  - Cardiac arrest [Fatal]
  - Cardiac failure [Fatal]
  - Decreased appetite [Unknown]
  - Vertigo [Unknown]
  - Asthenia [Unknown]
  - Blood sodium decreased [Unknown]
